FAERS Safety Report 16291317 (Version 2)
Quarter: 2020Q3

REPORT INFORMATION
  Report Type: Spontaneous
  Country: IN (occurrence: IN)
  Receive Date: 20190509
  Receipt Date: 20200813
  Transmission Date: 20201102
  Serious: Yes (Death, Life-Threatening)
  Sender: FDA-Public Use
  Company Number: IN-MYLANLABS-2019M1044591

PATIENT
  Age: 4 Year
  Sex: Male

DRUGS (23)
  1. FENTANYL. [Concomitant]
     Active Substance: FENTANYL
     Indication: ANAESTHESIA
     Dosage: 30 MICROGRAM
     Route: 065
  2. PANCURONIUM BROMIDE. [Concomitant]
     Active Substance: PANCURONIUM BROMIDE
     Indication: ENDOTRACHEAL INTUBATION
     Dosage: 1.5 MILLIGRAM
     Route: 065
  3. HEPARIN [Concomitant]
     Active Substance: HEPARIN SODIUM
     Indication: ANTICOAGULANT THERAPY
     Dosage: 50 MILLIGRAM
     Route: 065
  4. DOBUTAMINE [Concomitant]
     Active Substance: DOBUTAMINE HYDROCHLORIDE
     Indication: CARDIOPULMONARY BYPASS
     Dosage: 2?5 MCG/KG/MIN
     Route: 065
  5. RINGER^S SOLUTION                  /06440701/ [Concomitant]
     Indication: PRODUCT USED FOR UNKNOWN INDICATION
     Dosage: 450 MILLILITER
     Route: 065
  6. SEVOFLURANE. [Concomitant]
     Active Substance: SEVOFLURANE
     Indication: ANAESTHESIA
     Dosage: 5%?7% IN 100% OXYGEN
     Route: 055
  7. MIDAZOLAM. [Concomitant]
     Active Substance: MIDAZOLAM
     Indication: ANAESTHESIA
     Route: 065
  8. MILRINONE [Concomitant]
     Active Substance: MILRINONE
     Indication: CARDIOPULMONARY BYPASS
     Dosage: 0.5 MCG/KG/MIN
     Route: 065
  9. CALCIUM GLUCONATE. [Concomitant]
     Active Substance: CALCIUM GLUCONATE
     Indication: CARDIOPULMONARY BYPASS
     Dosage: 10 MILLIGRAM/KILOGRAM
     Route: 050
  10. NITROGLYCERIN. [Suspect]
     Active Substance: NITROGLYCERIN
     Indication: PULMONARY HYPERTENSIVE CRISIS
     Dosage: 2.5 MICROGRAM/KILOGRAM, QMINUTE
     Route: 055
  11. MILRINONE [Suspect]
     Active Substance: MILRINONE
     Indication: PULMONARY HYPERTENSIVE CRISIS
     Dosage: 80 MICROGRAM/KILOGRAM
     Route: 055
  12. SILDENAFIL. [Concomitant]
     Active Substance: SILDENAFIL
     Indication: PULMONARY HYPERTENSION
     Dosage: 6.25 MILLIGRAM, Q8H
     Route: 048
  13. THIOPENTONE SODIUM [Concomitant]
     Active Substance: THIOPENTAL SODIUM
     Indication: ANAESTHESIA
     Dosage: 15 MILLIGRAM
     Route: 065
  14. PHENOXYBENZAMINE [Concomitant]
     Active Substance: PHENOXYBENZAMINE
     Indication: METABOLIC ACIDOSIS
  15. PHENOXYBENZAMINE [Concomitant]
     Active Substance: PHENOXYBENZAMINE
     Indication: PULMONARY HYPERTENSION
  16. VASOPRESSIN. [Suspect]
     Active Substance: VASOPRESSIN
     Indication: PULMONARY HYPERTENSIVE CRISIS
     Dosage: 0.2 UNITS/MIN
     Route: 065
  17. EPINEPHRINE. [Suspect]
     Active Substance: EPINEPHRINE
     Indication: PULMONARY HYPERTENSIVE CRISIS
     Dosage: 0.1 MICROG/KG/MIN
     Route: 042
  18. SILDENAFIL. [Suspect]
     Active Substance: SILDENAFIL
     Indication: PULMONARY HYPERTENSIVE CRISIS
     Dosage: 0.05 MILLIGRAM/KILOGRAM, QH
     Route: 042
  19. NOREPINEPHRINE. [Suspect]
     Active Substance: NOREPINEPHRINE
     Indication: PULMONARY HYPERTENSIVE CRISIS
     Route: 065
  20. PROTAMINE [Concomitant]
     Active Substance: PROTAMINE
     Indication: PROPHYLAXIS
     Route: 065
  21. PHENOXYBENZAMINE [Concomitant]
     Active Substance: PHENOXYBENZAMINE
     Indication: PROPHYLAXIS
     Dosage: 1 MILLIGRAM/KILOGRAM
     Route: 065
  22. NITROGLYCERIN. [Concomitant]
     Active Substance: NITROGLYCERIN
     Indication: CARDIOPULMONARY BYPASS
     Dosage: 1 MCG/KG/MIN
     Route: 050
  23. ALBUMIN [Concomitant]
     Active Substance: ALBUMIN HUMAN
     Indication: PRODUCT USED FOR UNKNOWN INDICATION
     Dosage: 50 MILLILITER
     Route: 065

REACTIONS (1)
  - Drug ineffective [Fatal]
